FAERS Safety Report 23082550 (Version 1)
Quarter: 2023Q4

REPORT INFORMATION
  Report Type: Spontaneous
  Country: US (occurrence: US)
  Receive Date: 20231019
  Receipt Date: 20231019
  Transmission Date: 20240110
  Serious: Yes (Hospitalization, Other)
  Sender: FDA-Public Use
  Company Number: US-AVET LIFESCIENCES LTD-2023-AVET-000307

PATIENT
  Age: 129 Day
  Sex: Male

DRUGS (19)
  1. PROPOFOL [Suspect]
     Active Substance: PROPOFOL
     Indication: Sedative therapy
     Dosage: 25 MCG/KG/MINUTE
     Route: 042
  2. PROPOFOL [Suspect]
     Active Substance: PROPOFOL
     Dosage: 75 MCG/KG/MINUTE
     Route: 042
  3. PROPOFOL [Suspect]
     Active Substance: PROPOFOL
     Dosage: 25 MCG/KG/MINUTE EVERY 1 TO 2 HOURS UNTIL IT WAS DISCONTINUED 30 HOURS AFTER INITIATION
     Route: 042
  4. PROPOFOL [Suspect]
     Active Substance: PROPOFOL
     Dosage: RESTARTED 25 MCG/KG/MINUTE, ELEVEN HOURS AFTER THE DISCONTINUATION
     Route: 042
  5. PROPOFOL [Suspect]
     Active Substance: PROPOFOL
     Dosage: 125 MCG/KG/MINUTE  TO ACHIEVE SEDATION AND STABILITY FOR THE PROCEDURE
     Route: 042
  6. PROPOFOL [Suspect]
     Active Substance: PROPOFOL
     Dosage: 200 MCG/KG/MINUTE
     Route: 042
  7. PROPOFOL [Suspect]
     Active Substance: PROPOFOL
     Dosage: 25 MCG/KG/MINUTE EVERY 30 MINUTES UNTIL IT WAS DISCONTINUED
     Route: 042
  8. DEXMEDETOMIDINE [Concomitant]
     Active Substance: DEXMEDETOMIDINE
     Indication: Sedative therapy
     Dosage: 1.5 MCG/ KG/HR
     Route: 042
  9. DEXMEDETOMIDINE [Concomitant]
     Active Substance: DEXMEDETOMIDINE
     Dosage: 1 MCG/KG/HR
     Route: 042
  10. DEXMEDETOMIDINE [Concomitant]
     Active Substance: DEXMEDETOMIDINE
     Dosage: 1.5 MCG/KG/HR
     Route: 042
  11. MIDAZOLAM [Concomitant]
     Active Substance: MIDAZOLAM
     Indication: Sedative therapy
     Dosage: 1 MG/KG/HR
     Route: 042
  12. MIDAZOLAM [Concomitant]
     Active Substance: MIDAZOLAM
     Dosage: 0.080 MG/KG/HR
     Route: 042
  13. HYDROMORPHONE [Concomitant]
     Active Substance: HYDROMORPHONE
     Indication: Sedative therapy
     Dosage: 0.204 MG/KG/HR
     Route: 042
  14. HYDROMORPHONE [Concomitant]
     Active Substance: HYDROMORPHONE
     Dosage: 0.05 MG/KG/HR
     Route: 042
  15. HYDROMORPHONE [Concomitant]
     Active Substance: HYDROMORPHONE
     Dosage: 0.07  MG/ KG/HR
     Route: 042
  16. HYDROMORPHONE [Concomitant]
     Active Substance: HYDROMORPHONE
     Dosage: 0.094 MG/KG/HR
     Route: 042
  17. METHADONE [Concomitant]
     Active Substance: METHADONE HYDROCHLORIDE
     Indication: Cardiopulmonary failure
     Dosage: 0.08 MG/KG, 1 DOSE PER 6HRS
     Route: 042
  18. METHADONE [Concomitant]
     Active Substance: METHADONE HYDROCHLORIDE
     Dosage: 0.1 MG/KG/DOSE
     Route: 042
  19. LORAZEPAM [Concomitant]
     Active Substance: LORAZEPAM
     Dosage: 0.25 MG/KG EVERY 6 HOURS

REACTIONS (2)
  - Blood triglycerides increased [Recovering/Resolving]
  - Withdrawal syndrome [Unknown]
